FAERS Safety Report 16384809 (Version 1)
Quarter: 2019Q2

REPORT INFORMATION
  Report Type: Spontaneous
  Country: US (occurrence: US)
  Receive Date: 20190603
  Receipt Date: 20190603
  Transmission Date: 20190711
  Serious: No
  Sender: FDA-Public Use
  Company Number: US-009507513-1905USA014009

PATIENT
  Age: 15 Year
  Sex: Female
  Weight: 49 kg

DRUGS (1)
  1. NEXPLANON [Suspect]
     Active Substance: ETONOGESTREL
     Dosage: 1 DOSAGE FORM, LEFT ARM, NON-DOMINANT ARM
     Route: 059
     Dates: start: 20170307, end: 20190508

REACTIONS (4)
  - Vaginal haemorrhage [Unknown]
  - Surgery [Unknown]
  - Complication of device removal [Recovered/Resolved]
  - Device deployment issue [Recovered/Resolved]

NARRATIVE: CASE EVENT DATE: 20170307
